FAERS Safety Report 20517496 (Version 1)
Quarter: 2022Q1

REPORT INFORMATION
  Report Type: Spontaneous
  Country: JP (occurrence: JP)
  Receive Date: 20220225
  Receipt Date: 20220225
  Transmission Date: 20220424
  Serious: Yes (Other)
  Sender: FDA-Public Use
  Company Number: JP-MYLANLABS-2022M1014064

PATIENT
  Age: 84 Year
  Sex: Female

DRUGS (4)
  1. IMATINIB [Interacting]
     Active Substance: IMATINIB
     Indication: Metastases to liver
     Route: 065
     Dates: start: 201904
  2. IMATINIB [Interacting]
     Active Substance: IMATINIB
     Indication: Gastrointestinal stromal tumour
  3. GEFITINIB [Interacting]
     Active Substance: GEFITINIB
     Indication: Non-small cell lung cancer recurrent
     Route: 065
  4. ERLOTINIB [Concomitant]
     Active Substance: ERLOTINIB
     Indication: Non-small cell lung cancer recurrent
     Route: 065
     Dates: start: 201907

REACTIONS (2)
  - Diarrhoea [Unknown]
  - Drug interaction [Unknown]

NARRATIVE: CASE EVENT DATE: 20190101
